FAERS Safety Report 13831571 (Version 1)
Quarter: 2017Q3

REPORT INFORMATION
  Report Type: Spontaneous
  Country: US (occurrence: US)
  Receive Date: 20170803
  Receipt Date: 20170803
  Transmission Date: 20171127
  Serious: No
  Sender: FDA-Public Use
  Company Number: US-LANNETT COMPANY, INC.-US-2016LAN001693

PATIENT
  Age: 5 Year
  Sex: Female

DRUGS (1)
  1. LORATADINE. [Suspect]
     Active Substance: LORATADINE
     Indication: RHINORRHOEA
     Dosage: 1 TEASPOON, PER NIGHT
     Route: 048
     Dates: start: 20161006, end: 201610

REACTIONS (4)
  - Eye swelling [Unknown]
  - Conjunctivitis [Not Recovered/Not Resolved]
  - Hypersensitivity [Unknown]
  - Eye discharge [Unknown]

NARRATIVE: CASE EVENT DATE: 20161007
